FAERS Safety Report 10584699 (Version 1)
Quarter: 2014Q4

REPORT INFORMATION
  Report Type: Spontaneous
  Country: US (occurrence: None)
  Receive Date: 20141112
  Receipt Date: 20141112
  Transmission Date: 20150529
  Serious: Yes (Hospitalization)
  Sender: FDA-Public Use
  Company Number: ORE201408-000152

PATIENT
  Age: 40 Year
  Sex: Female

DRUGS (3)
  1. KLONOPIN [Concomitant]
     Active Substance: CLONAZEPAM
  2. ADDERALL (AMPHEAMINE, DEXTROAPHETAMINE) [Concomitant]
  3. ZUBSOLV [Suspect]
     Active Substance: BUPRENORPHINE HYDROCHLORIDE\NALOXONE HYDROCHLORIDE
     Indication: DRUG DEPENDENCE
     Dosage: 2 DOSAGE FORMS
     Route: 060

REACTIONS (13)
  - Vomiting [None]
  - Mouth haemorrhage [None]
  - Unevaluable event [None]
  - Hypersensitivity [None]
  - Malaise [None]
  - Tremor [None]
  - Abdominal discomfort [None]
  - Rash generalised [None]
  - Impaired work ability [None]
  - Withdrawal syndrome [None]
  - Cold sweat [None]
  - Swollen tongue [None]
  - Blister [None]

NARRATIVE: CASE EVENT DATE: 20140711
